FAERS Safety Report 18402438 (Version 1)
Quarter: 2020Q4

REPORT INFORMATION
  Report Type: Report from Study
  Country: US (occurrence: US)
  Receive Date: 20201019
  Receipt Date: 20201019
  Transmission Date: 20210114
  Serious: No
  Sender: FDA-Public Use
  Company Number: NVSC2020US276983

PATIENT
  Age: 66 Year
  Sex: Female

DRUGS (1)
  1. COSENTYX [Suspect]
     Active Substance: SECUKINUMAB
     Indication: PSORIATIC ARTHROPATHY
     Dosage: 150 MG, BENEATH THE SKIN USUALLY VIA INJECTION, ONCE WEEKLY FOR 5 WEEKS, THEN ONCE
     Route: 058

REACTIONS (2)
  - Therapeutic product effect delayed [Unknown]
  - Psoriasis [Unknown]

NARRATIVE: CASE EVENT DATE: 20201013
